FAERS Safety Report 8463729-4 (Version None)
Quarter: 2012Q2

REPORT INFORMATION
  Report Type: 
  Country: None (occurrence: None)
  Receive Date: 20120625
  Receipt Date: 20120618
  Transmission Date: 20120825
  Serious: Yes (Hospitalization)
  Sender: FDA-Public Use
  Company Number: PHHY2012FR053213

PATIENT
  Sex: Male

DRUGS (8)
  1. STALEVO 100 [Suspect]
     Dosage: 200/200/50 MG, 1 TABLET 4 TIMES PER DAY
     Route: 048
  2. STALEVO 100 [Suspect]
     Dosage: 200/200/50 MG, 4 TIMES PER DAY AND (200/150/37.5 MG) 2 TIMES A DAY
     Route: 048
  3. AZILECT [Concomitant]
     Dosage: 1 MG, QD
  4. SINEMET [Concomitant]
     Dosage: 3 DF, QHS
  5. PRAZEPAM [Concomitant]
  6. MOTILIUM [Concomitant]
     Dosage: 2 DF, TID
  7. PRAMIPEXOLE DIHYDROCHLORIDE [Concomitant]
     Dosage: 1 DF, QD
  8. STALEVO 100 [Suspect]
     Indication: PARKINSON'S DISEASE
     Dosage: 200/200/50 MG, 1 TABLET 6 TIMES PER DAY
     Route: 048
     Dates: start: 20101001, end: 20110601

REACTIONS (6)
  - NEUROMYOPATHY [None]
  - PSYCHOLOGICAL TRAUMA [None]
  - INSOMNIA [None]
  - TREMOR [None]
  - ANXIETY [None]
  - DYSKINESIA [None]
